FAERS Safety Report 17464261 (Version 7)
Quarter: 2021Q1

REPORT INFORMATION
  Report Type: Spontaneous
  Country: ES (occurrence: ES)
  Receive Date: 20200226
  Receipt Date: 20210223
  Transmission Date: 20210419
  Serious: Yes (Life-Threatening, Hospitalization, Other)
  Sender: FDA-Public Use
  Company Number: ES-ALEXION-A202000678

PATIENT
  Age: 16 Year
  Sex: Male
  Weight: 48.7 kg

DRUGS (6)
  1. SOLIRIS [Suspect]
     Active Substance: ECULIZUMAB
     Indication: OFF LABEL USE
     Dosage: UNK
     Route: 065
     Dates: start: 20200313
  2. SOLIRIS [Suspect]
     Active Substance: ECULIZUMAB
     Indication: ALLOGENIC STEM CELL TRANSPLANTATION
     Dosage: 900 MG, QW
     Route: 065
     Dates: start: 20200114, end: 20200204
  3. SOLIRIS [Suspect]
     Active Substance: ECULIZUMAB
     Dosage: 1200 MG, UNK
     Route: 065
     Dates: start: 20200327
  4. SOLIRIS [Suspect]
     Active Substance: ECULIZUMAB
     Indication: CONGENITAL APLASTIC ANAEMIA
     Dosage: 1200 MG, UNK
     Route: 065
     Dates: start: 20200211
  5. SOLIRIS [Suspect]
     Active Substance: ECULIZUMAB
     Indication: THROMBOTIC MICROANGIOPATHY
     Dosage: UNK
     Route: 065
     Dates: start: 20200128
  6. SOLIRIS [Suspect]
     Active Substance: ECULIZUMAB
     Dosage: UNK
     Route: 065
     Dates: start: 20200410

REACTIONS (9)
  - Hypoxia [Recovering/Resolving]
  - Rhinovirus infection [Recovering/Resolving]
  - Off label use [Unknown]
  - Pneumocystis jirovecii pneumonia [Recovering/Resolving]
  - Respiratory distress [Recovering/Resolving]
  - Subdural haematoma [Recovered/Resolved]
  - Cerebral haemorrhage [Recovered/Resolved]
  - Enterococcal sepsis [Not Recovered/Not Resolved]
  - Condition aggravated [Unknown]

NARRATIVE: CASE EVENT DATE: 20200114
